FAERS Safety Report 4339855-8 (Version None)
Quarter: 2004Q2

REPORT INFORMATION
  Report Type: 
  Country: None (occurrence: None)
  Receive Date: 20040415
  Receipt Date: 20040415
  Transmission Date: 20050107
  Serious: Yes (Other)
  Sender: FDA-Public Use
  Company Number: None

PATIENT
  Sex: Female
  Weight: 127.4608 kg

DRUGS (2)
  1. RITALIN-SR [Suspect]
     Indication: NARCOLEPSY
     Dosage: TWO DAILY ORAL
     Route: 048
  2. RITALIN [Suspect]
     Indication: NARCOLEPSY
     Dosage: TWO DAILY ORAL
     Route: 048

REACTIONS (2)
  - MIGRAINE [None]
  - PHARMACEUTICAL PRODUCT COMPLAINT [None]
